FAERS Safety Report 5939717-6 (Version None)
Quarter: 2008Q4

REPORT INFORMATION
  Report Type: 
  Country: None (occurrence: None)
  Receive Date: 20081030
  Receipt Date: 20081030
  Transmission Date: 20090506
  Serious: Yes (Other)
  Sender: FDA-Public Use
  Company Number: None

PATIENT
  Sex: Female
  Weight: 48.0813 kg

DRUGS (6)
  1. VENLAFAXINE HCL EXTENDED-RELEASE [Suspect]
     Indication: DEPRESSION
     Dosage: ONE CAPSULE 1 A DAY BY MOUTH
     Route: 048
     Dates: start: 20080606, end: 20081018
  2. MIRTAZAPINE [Suspect]
     Dosage: 30MG 1 TAB AT BETIME BY MOUTH
     Route: 048
  3. CLONAZEPAM [Suspect]
     Dosage: 0.5 MG 1/2 TAB IN AM 1 TAB AT SUPPER
  4. DOCUSATE [Suspect]
     Dosage: 2 TAB
  5. ADDERALL 10 [Suspect]
  6. AMBIEN CR [Suspect]

REACTIONS (5)
  - ABDOMINAL DISCOMFORT [None]
  - CONSTIPATION [None]
  - DIARRHOEA [None]
  - FAECAL VOLUME INCREASED [None]
  - FLATULENCE [None]
